FAERS Safety Report 13756991 (Version 3)
Quarter: 2017Q3

REPORT INFORMATION
  Report Type: Spontaneous
  Country: SN (occurrence: SN)
  Receive Date: 20170714
  Receipt Date: 20170821
  Transmission Date: 20171127
  Serious: Yes (Death, Hospitalization, Other)
  Sender: FDA-Public Use
  Company Number: SN-ALLERGAN-1649076

PATIENT
  Age: 56 Year
  Sex: Female
  Weight: 57 kg

DRUGS (4)
  1. URSODEOXYCHOLIC ACID UNK [Suspect]
     Active Substance: URSODIOL
     Indication: PRODUCT USED FOR UNKNOWN INDICATION
     Dosage: 1200 MG, QD
     Route: 065
  2. URSODEOXYCHOLIC ACID UNK [Suspect]
     Active Substance: URSODIOL
     Dosage: 800 MG, QD
     Route: 065
  3. PREDNISONE. [Suspect]
     Active Substance: PREDNISONE
     Indication: PRODUCT USED FOR UNKNOWN INDICATION
     Dosage: 10 MG, QD
     Route: 065
  4. AZATHIOPRINE. [Suspect]
     Active Substance: AZATHIOPRINE
     Indication: PRODUCT USED FOR UNKNOWN INDICATION
     Dosage: 50 MG, QD
     Route: 065

REACTIONS (10)
  - Haematemesis [Not Recovered/Not Resolved]
  - Pancytopenia [Recovered/Resolved]
  - Foetor hepaticus [Not Recovered/Not Resolved]
  - Hepatic failure [Fatal]
  - Drug resistance [Not Recovered/Not Resolved]
  - Subdural haematoma [Not Recovered/Not Resolved]
  - Retroperitoneal haematoma [Recovered/Resolved]
  - Extrapyramidal disorder [Not Recovered/Not Resolved]
  - Off label use [Unknown]
  - Generalised tonic-clonic seizure [Not Recovered/Not Resolved]

NARRATIVE: CASE EVENT DATE: 201106
